FAERS Safety Report 15995252 (Version 9)
Quarter: 2020Q3

REPORT INFORMATION
  Report Type: Other
  Country: CA (occurrence: CA)
  Receive Date: 20190222
  Receipt Date: 20200714
  Transmission Date: 20201102
  Serious: Yes (Hospitalization, Other)
  Sender: FDA-Public Use
  Company Number: CA-ROCHE-2017681

PATIENT
  Age: 62 Year
  Sex: Female
  Weight: 62.6 kg

DRUGS (9)
  1. TYLENOL EXTRA STRENGTH [Concomitant]
     Active Substance: ACETAMINOPHEN
     Dosage: MAX 3 PER DAY
  2. APO?DILTIAZ [Concomitant]
     Active Substance: DILTIAZEM HYDROCHLORIDE
     Indication: PRODUCT USED FOR UNKNOWN INDICATION
     Dosage: (1/2 TAB TWICE A DAY)
     Route: 048
  3. PERINDOPRIL ERBUMINE. [Concomitant]
     Active Substance: PERINDOPRIL ERBUMINE
     Indication: PRODUCT USED FOR UNKNOWN INDICATION
     Route: 048
  4. SYNTHROID [Concomitant]
     Active Substance: LEVOTHYROXINE SODIUM
     Route: 048
  5. LEVOTHYROXINE. [Concomitant]
     Active Substance: LEVOTHYROXINE
     Route: 048
  6. TECENTRIQ [Suspect]
     Active Substance: ATEZOLIZUMAB
     Indication: METASTATIC CARCINOMA OF THE BLADDER
     Dosage: NO PIRS AVAILABLE UNTIL 29/JUL/2019
     Route: 042
     Dates: start: 20171012
  7. DILTIAZEM. [Concomitant]
     Active Substance: DILTIAZEM
     Route: 048
  8. SYNTHROID [Concomitant]
     Active Substance: LEVOTHYROXINE SODIUM
  9. DILTIAZEM. [Concomitant]
     Active Substance: DILTIAZEM
     Dosage: HALF TABLET TWICE A DAY
     Route: 048

REACTIONS (41)
  - Peripheral motor neuropathy [Unknown]
  - Blood thyroid stimulating hormone increased [Unknown]
  - Fatigue [Not Recovered/Not Resolved]
  - Nasopharyngitis [Recovering/Resolving]
  - Hyperhidrosis [Unknown]
  - Blood pressure systolic increased [Unknown]
  - Dry skin [Unknown]
  - Hydronephrosis [Unknown]
  - Renal pain [Recovered/Resolved]
  - Body temperature increased [Not Recovered/Not Resolved]
  - Headache [Unknown]
  - Diarrhoea [Unknown]
  - Cystitis [Unknown]
  - Nephrolithiasis [Recovered/Resolved]
  - Urinary tract stoma complication [Recovered/Resolved]
  - Dry mouth [Unknown]
  - Red cell distribution width increased [Unknown]
  - Bone pain [Unknown]
  - Pyrexia [Unknown]
  - Abdominal pain lower [Unknown]
  - Oesophagitis [Unknown]
  - Infected cyst [Unknown]
  - Arthralgia [Unknown]
  - Blood pressure increased [Unknown]
  - Flank pain [Unknown]
  - Neutrophil percentage increased [Unknown]
  - Urinary tract infection [Unknown]
  - Myalgia [Unknown]
  - Liver function test increased [Unknown]
  - Hot flush [Unknown]
  - Blood creatinine increased [Unknown]
  - Paraesthesia [Unknown]
  - Groin pain [Unknown]
  - Lymphocyte count decreased [Unknown]
  - Lymphocyte percentage decreased [Unknown]
  - Nocturia [Unknown]
  - Immunodeficiency [Unknown]
  - Cough [Not Recovered/Not Resolved]
  - Hypoaesthesia [Unknown]
  - Pain [Unknown]
  - Mean cell haemoglobin decreased [Unknown]

NARRATIVE: CASE EVENT DATE: 2018
